FAERS Safety Report 5894173-1 (Version None)
Quarter: 2008Q3

REPORT INFORMATION
  Report Type: 
  Country: None (occurrence: None)
  Receive Date: 20080923
  Receipt Date: 20080325
  Transmission Date: 20090109
  Serious: No
  Sender: FDA-Public Use
  Company Number: US-ASTRAZENECA-2008UW03322

PATIENT
  Age: 52 Year
  Sex: Male

DRUGS (1)
  1. SEROQUEL [Suspect]
     Route: 048
     Dates: start: 20080208

REACTIONS (5)
  - ABNORMAL DREAMS [None]
  - MENTAL STATUS CHANGES [None]
  - NEUROPATHY PERIPHERAL [None]
  - SKIN BURNING SENSATION [None]
  - SWOLLEN TONGUE [None]
